FAERS Safety Report 12497484 (Version 2)
Quarter: 2016Q2

REPORT INFORMATION
  Report Type: Spontaneous
  Country: FR (occurrence: FR)
  Receive Date: 20160624
  Receipt Date: 20160628
  Transmission Date: 20160815
  Serious: Yes (Other)
  Sender: FDA-Public Use
  Company Number: FR-JNJFOC-20160620858

PATIENT
  Age: 22 Year
  Sex: Male

DRUGS (2)
  1. RISPERDAL [Suspect]
     Active Substance: RISPERIDONE
     Indication: PRODUCT USED FOR UNKNOWN INDICATION
     Route: 065
  2. LYSANXIA [Concomitant]
     Active Substance: PRAZEPAM
     Route: 065

REACTIONS (2)
  - Hepatocellular injury [Unknown]
  - Prothrombin time prolonged [Not Recovered/Not Resolved]
